FAERS Safety Report 11123118 (Version 1)
Quarter: 2015Q2

REPORT INFORMATION
  Report Type: Report from Study
  Country: US (occurrence: US)
  Receive Date: 20150519
  Receipt Date: 20150519
  Transmission Date: 20150821
  Serious: Yes (Hospitalization)
  Sender: FDA-Public Use
  Company Number: US-EISAI MEDICAL RESEARCH-EC-2015-006779

PATIENT
  Age: 65 Year
  Sex: Female
  Weight: 89 kg

DRUGS (17)
  1. PHENYLEPHRINE HCI [Concomitant]
     Route: 048
     Dates: start: 20150303
  2. CARVEDILOL. [Concomitant]
     Active Substance: CARVEDILOL
     Route: 048
     Dates: start: 20070820
  3. MONTELUKAST [Concomitant]
     Active Substance: MONTELUKAST SODIUM
     Route: 048
     Dates: start: 20070820
  4. SALMETEROL [Concomitant]
     Active Substance: SALMETEROL
     Route: 050
     Dates: start: 20070820
  5. HYDROCODONE [Concomitant]
     Active Substance: HYDROCODONE
     Route: 048
     Dates: start: 20150303
  6. ACETAMINOPHEN. [Concomitant]
     Active Substance: ACETAMINOPHEN
     Route: 048
     Dates: start: 20150303
  7. PAROXETINE [Concomitant]
     Active Substance: PAROXETINE\PAROXETINE HYDROCHLORIDE
     Route: 048
     Dates: start: 20070820
  8. ASPIRIN. [Concomitant]
     Active Substance: ASPIRIN
     Route: 048
     Dates: start: 20070820
  9. CLOPIDOGREL [Concomitant]
     Active Substance: CLOPIDOGREL BISULFATE
     Route: 048
     Dates: start: 20070820
  10. OMEGA 3 [Concomitant]
     Active Substance: OMEGA-3 FATTY ACIDS
     Route: 048
     Dates: start: 20090331
  11. FLUTICASONE [Concomitant]
     Active Substance: FLUTICASONE\FLUTICASONE PROPIONATE
     Route: 050
     Dates: start: 20070820
  12. ALBUTERAL [Concomitant]
     Active Substance: ALBUTEROL
     Route: 050
     Dates: start: 20121119
  13. MULTIVITAMIN [Concomitant]
     Active Substance: VITAMINS
     Route: 048
     Dates: start: 20070820
  14. NITROGLYCERIN. [Concomitant]
     Active Substance: NITROGLYCERIN
     Route: 060
     Dates: start: 20070820
  15. LORCASERIN [Suspect]
     Active Substance: LORCASERIN HYDROCHLORIDE
     Indication: WEIGHT CONTROL
     Route: 048
     Dates: start: 20150318
  16. CALCIUM [Concomitant]
     Active Substance: CALCIUM
     Route: 048
     Dates: start: 20070820
  17. VITAMIN D [Concomitant]
     Active Substance: CHOLECALCIFEROL
     Route: 048
     Dates: start: 20070820

REACTIONS (1)
  - Cellulitis [Not Recovered/Not Resolved]

NARRATIVE: CASE EVENT DATE: 20150512
